FAERS Safety Report 6431196-8 (Version None)
Quarter: 2009Q4

REPORT INFORMATION
  Report Type: 
  Country: None (occurrence: None)
  Receive Date: 20091106
  Receipt Date: 20091029
  Transmission Date: 20100525
  Serious: Yes (Hospitalization)
  Sender: FDA-Public Use
  Company Number: FR-JNJFOC-20091100243

PATIENT
  Age: 17 Year
  Sex: Male

DRUGS (2)
  1. RISPERDAL [Suspect]
     Dosage: 5 TABLETS OF 2 MG RISPERIDONE
     Route: 048
     Dates: end: 20090813
  2. RISPERDAL [Suspect]
     Indication: INSOMNIA
     Dosage: 0.5 TO 1 TABLET PER DAY
     Route: 048
     Dates: end: 20090813

REACTIONS (4)
  - BRADYCARDIA [None]
  - MEDICATION ERROR [None]
  - OFF LABEL USE [None]
  - SOMNOLENCE [None]
